FAERS Safety Report 20532417 (Version 1)
Quarter: 2022Q1

REPORT INFORMATION
  Report Type: Spontaneous
  Country: US (occurrence: US)
  Receive Date: 20220301
  Receipt Date: 20220301
  Transmission Date: 20220423
  Serious: No
  Sender: FDA-Public Use
  Company Number: US-PFIZER INC-202101690036

PATIENT
  Age: 31 Year
  Sex: Female

DRUGS (7)
  1. XELJANZ [Suspect]
     Active Substance: TOFACITINIB CITRATE
     Dosage: UNK
  2. TYLENOL [Concomitant]
     Active Substance: ACETAMINOPHEN
  3. VITAMIN D3 [Concomitant]
     Active Substance: CHOLECALCIFEROL
  4. METHOTREXATE [Concomitant]
     Active Substance: METHOTREXATE
  5. BLISOVI FE 1/20 [Concomitant]
     Active Substance: ETHINYL ESTRADIOL\NORETHINDRONE ACETATE
  6. FOLIC ACID [Concomitant]
     Active Substance: FOLIC ACID
  7. RINVOQ [Concomitant]
     Active Substance: UPADACITINIB

REACTIONS (1)
  - Condition aggravated [Unknown]
